FAERS Safety Report 5765366-9 (Version None)
Quarter: 2008Q2

REPORT INFORMATION
  Report Type: 
  Country: None (occurrence: None)
  Receive Date: 20080609
  Receipt Date: 20080609
  Transmission Date: 20081010
  Serious: Yes (Other)
  Sender: FDA-Public Use
  Company Number: None

PATIENT
  Age: 69 Year
  Sex: Female
  Weight: 72.5755 kg

DRUGS (1)
  1. REMICADE [Suspect]
     Indication: RHEUMATOID ARTHRITIS
     Dosage: EVERY 5 WEEKS IV DRIP
     Route: 041
     Dates: start: 20060301, end: 20070701

REACTIONS (16)
  - BURNING SENSATION [None]
  - CHEST DISCOMFORT [None]
  - CHEST PAIN [None]
  - DERMATITIS [None]
  - DIARRHOEA [None]
  - DRY SKIN [None]
  - DYSPEPSIA [None]
  - FAECAL INCONTINENCE [None]
  - FEELING ABNORMAL [None]
  - HYPERKERATOSIS [None]
  - HYPERTENSION [None]
  - PRURITUS [None]
  - RASH [None]
  - SCRATCH [None]
  - SKIN ULCER [None]
  - VAGINAL DISCHARGE [None]
